FAERS Safety Report 8848971 (Version 2)
Quarter: 2012Q4

REPORT INFORMATION
  Report Type: 
  Country: LT (occurrence: LT)
  Receive Date: 20121019
  Receipt Date: 20121030
  Transmission Date: 20130627
  Serious: Yes (Hospitalization)
  Sender: FDA-Public Use
  Company Number: LT-ELI_LILLY_AND_COMPANY-LT201210004749

PATIENT
  Sex: Female
  Weight: 96 kg

DRUGS (2)
  1. ZYPADHERA [Suspect]
     Indication: SCHIZOPHRENIA
     Dosage: 300mg, twice monthly
     Route: 030
     Dates: start: 20100824
  2. BETALOC [Concomitant]
     Indication: HYPERTENSION
     Dosage: 100mg, UNK
     Route: 048
     Dates: start: 2010

REACTIONS (4)
  - Hypertensive crisis [Recovered/Resolved]
  - Asthenia [Recovered/Resolved]
  - Dizziness [Recovered/Resolved]
  - Blood pressure fluctuation [Unknown]
